FAERS Safety Report 8632642 (Version 2)
Quarter: 2013Q3

REPORT INFORMATION
  Report Type: Report from Study
  Country: US (occurrence: US)
  Receive Date: 20120625
  Receipt Date: 20130704
  Transmission Date: 20140515
  Serious: Yes (Hospitalization)
  Sender: FDA-Public Use
  Company Number: US-ELI_LILLY_AND_COMPANY-US201206004784

PATIENT
  Age: 69 Year
  Sex: Female

DRUGS (2)
  1. TERIPARATIDE [Suspect]
     Indication: OSTEOPOROSIS
     Dosage: 20 UG, QD
     Dates: start: 201112
  2. TERIPARATIDE [Suspect]
     Dosage: UNK, QD

REACTIONS (4)
  - Upper limb fracture [Recovering/Resolving]
  - Musculoskeletal pain [Unknown]
  - Tendonitis [Unknown]
  - Fall [Unknown]
